FAERS Safety Report 25118337 (Version 2)
Quarter: 2025Q1

REPORT INFORMATION
  Report Type: Report from Study
  Country: FR (occurrence: FR)
  Receive Date: 20250325
  Receipt Date: 20250327
  Transmission Date: 20250409
  Serious: Yes (Other)
  Sender: PFIZER
  Company Number: FR-PFM-2025-00906

PATIENT
  Age: 7 Decade
  Sex: Female
  Weight: 91 kg

DRUGS (2)
  1. BINIMETINIB [Suspect]
     Active Substance: BINIMETINIB
     Indication: Lung cancer metastatic
     Dosage: 45 MG TWICE PER DAY
     Route: 048
     Dates: start: 20240420, end: 20240422
  2. ENCORAFENIB [Suspect]
     Active Substance: ENCORAFENIB
     Indication: Lung cancer metastatic
     Dosage: 450 MG ONCE PER DAY
     Route: 048
     Dates: start: 20240420, end: 20240422

REACTIONS (1)
  - Serous retinal detachment [Recovered/Resolved]

NARRATIVE: CASE EVENT DATE: 20240420
